FAERS Safety Report 9444190 (Version 1)
Quarter: 2013Q3

REPORT INFORMATION
  Report Type: Spontaneous
  Country: US (occurrence: None)
  Receive Date: 20130806
  Receipt Date: 20130806
  Transmission Date: 20140515
  Serious: Yes (Other)
  Sender: FDA-Public Use
  Company Number: None

PATIENT
  Age: 69 Year
  Sex: Female
  Weight: 79.83 kg

DRUGS (1)
  1. PANTOPRAZOLE 40 MG POWDER FOR SOLUTION FOR INJECTION [Suspect]
     Indication: GASTROOESOPHAGEAL REFLUX DISEASE
     Dosage: ONE TAB DAILY PO
     Route: 048
     Dates: start: 2013

REACTIONS (2)
  - Gastrooesophageal reflux disease [None]
  - Product substitution issue [None]
